FAERS Safety Report 26074510 (Version 2)
Quarter: 2025Q4

REPORT INFORMATION
  Report Type: Spontaneous
  Country: EU (occurrence: EU)
  Receive Date: 20251121
  Receipt Date: 20251210
  Transmission Date: 20260117
  Serious: Yes (Life-Threatening, Hospitalization)
  Sender: MERCK SHARP & DOHME LLC
  Company Number: None

PATIENT
  Age: 60 Year
  Sex: Male
  Weight: 100 kg

DRUGS (3)
  1. KEYTRUDA [Suspect]
     Active Substance: PEMBROLIZUMAB
     Indication: Malignant melanoma
     Dosage: STRENGTH:  25 MG/ML ?DOSING: 1. APPLICATION, DOSE?
     Route: 042
     Dates: start: 20251015, end: 20251015
  2. Helex 0.25 MG [Concomitant]
     Dosage: TIME INTERVAL: AS NECESSARY
  3. TANYZ ERAS 0.4 MG [Concomitant]

REACTIONS (1)
  - Diabetic ketoacidosis [Recovering/Resolving]

NARRATIVE: CASE EVENT DATE: 20251104
